FAERS Safety Report 20235144 (Version 1)
Quarter: 2021Q4

REPORT INFORMATION
  Report Type: Spontaneous
  Country: US (occurrence: None)
  Receive Date: 20211227
  Receipt Date: 20211227
  Transmission Date: 20220303
  Serious: Yes (Other)
  Sender: FDA-Public Use
  Company Number: US-ROCHE-2982551

PATIENT
  Sex: Male

DRUGS (2)
  1. ESBRIET [Suspect]
     Active Substance: PIRFENIDONE
     Indication: Idiopathic pulmonary fibrosis
     Route: 048
     Dates: start: 202111
  2. ESBRIET [Suspect]
     Active Substance: PIRFENIDONE
     Route: 048
     Dates: start: 20211105

REACTIONS (10)
  - Cough [Unknown]
  - Fatigue [Unknown]
  - Fatigue [Unknown]
  - Abdominal pain upper [Unknown]
  - Dysgeusia [Unknown]
  - Weight decreased [Unknown]
  - Ill-defined disorder [Unknown]
  - Rash erythematous [Unknown]
  - Malaise [Unknown]
  - Dyspnoea [Unknown]
